FAERS Safety Report 22060920 (Version 2)
Quarter: 2023Q1

REPORT INFORMATION
  Report Type: Report from Study
  Country: US (occurrence: US)
  Receive Date: 20230303
  Receipt Date: 20230320
  Transmission Date: 20230418
  Serious: Yes (Hospitalization, Other)
  Sender: FDA-Public Use
  Company Number: US-AMGEN-USASP2023033808

PATIENT
  Age: 69 Year
  Sex: Female
  Weight: 131.7 kg

DRUGS (19)
  1. ETANERCEPT [Suspect]
     Active Substance: ETANERCEPT
     Indication: Rheumatoid arthritis
     Dosage: 50 MILLIGRAM, QWK
     Route: 065
     Dates: start: 20191003, end: 20200410
  2. ADALIMUMAB [Suspect]
     Active Substance: ADALIMUMAB
     Indication: Rheumatoid arthritis
     Dosage: 40 MILLIGRAM, Q2WK
     Route: 065
     Dates: start: 20200420
  3. CITALOPRAM HYDROBROMIDE [Concomitant]
     Active Substance: CITALOPRAM HYDROBROMIDE
     Indication: Depression
     Dosage: UNK
     Dates: start: 2016
  4. LYRICA [Concomitant]
     Active Substance: PREGABALIN
     Dosage: UNK
     Dates: start: 2014
  5. VITAMIN B [Concomitant]
     Active Substance: VITAMIN B
     Indication: Vitamin B complex deficiency
     Dosage: UNK
     Dates: start: 2016
  6. MELATONIN [Concomitant]
     Active Substance: MELATONIN
     Indication: Insomnia
     Dosage: UNK
     Dates: start: 2018
  7. OMEPRAZOLE [Concomitant]
     Active Substance: OMEPRAZOLE
     Indication: Gastrooesophageal reflux disease
     Dosage: UNK
     Dates: start: 2016
  8. LIDOCAINE [Concomitant]
     Active Substance: LIDOCAINE
     Dosage: UNK
     Dates: start: 201903
  9. IRON [Concomitant]
     Active Substance: IRON
     Indication: Anaemia
     Dosage: UNK
     Dates: start: 20190901
  10. DIPHENHYDRAMINE [Concomitant]
     Active Substance: DIPHENHYDRAMINE
     Indication: Rhinitis perennial
     Dosage: UNK
     Dates: start: 201606
  11. VENTOLIN HFA [Concomitant]
     Active Substance: ALBUTEROL SULFATE
     Dosage: UNK
     Dates: start: 2000
  12. PREDNISONE [Concomitant]
     Active Substance: PREDNISONE
     Indication: Rheumatoid arthritis
     Dosage: UNK
     Dates: start: 20191226
  13. OXYCODONE [Concomitant]
     Active Substance: OXYCODONE
     Indication: Rheumatoid arthritis
     Dosage: UNK
     Dates: start: 20210401
  14. METHOTREXATE [Concomitant]
     Active Substance: METHOTREXATE
     Indication: Rheumatoid arthritis
     Dosage: UNK
     Dates: start: 2013
  15. FOLIC ACID [Concomitant]
     Active Substance: FOLIC ACID
     Indication: Prophylaxis
     Dosage: UNK
     Dates: start: 2013
  16. BUPROPION [Concomitant]
     Active Substance: BUPROPION
     Indication: Depression
     Dosage: UNK
     Dates: start: 2016
  17. VITAMIN D2 [Concomitant]
     Active Substance: ERGOCALCIFEROL
     Indication: Vitamin D deficiency
     Dosage: UNK
     Dates: start: 2018
  18. HYDROXYCHLOROQUINE SULFATE [Concomitant]
     Active Substance: HYDROXYCHLOROQUINE SULFATE
     Indication: Rheumatoid arthritis
     Dosage: UNK
     Dates: start: 1989
  19. PREGABALIN [Concomitant]
     Active Substance: PREGABALIN
     Indication: Restless legs syndrome
     Dosage: UNK

REACTIONS (1)
  - Arthralgia [Recovered/Resolved]

NARRATIVE: CASE EVENT DATE: 20200801
